FAERS Safety Report 7451243-4 (Version None)
Quarter: 2011Q2

REPORT INFORMATION
  Report Type: 
  Country: None (occurrence: None)
  Receive Date: 20110502
  Receipt Date: 20110419
  Transmission Date: 20111010
  Serious: Yes (Other)
  Sender: FDA-Public Use
  Company Number: PHHY2009JP46757

PATIENT
  Age: 53 Year
  Sex: Male
  Weight: 64 kg

DRUGS (7)
  1. GLEEVEC [Suspect]
     Dosage: 200 MG DAILY
     Route: 048
     Dates: start: 20070401
  2. GLEEVEC [Suspect]
     Indication: GASTROINTESTINAL STROMAL TUMOUR
     Dosage: 400 MG DAILY
     Route: 048
     Dates: start: 20060201, end: 20060401
  3. GLEEVEC [Suspect]
     Dosage: 100 MG DAILY
     Route: 048
     Dates: start: 20070201, end: 20070302
  4. PREDNISOLONE [Concomitant]
     Dosage: 10 MG, UNK
  5. GLEEVEC [Suspect]
     Dosage: 200 MG DAILY
     Route: 048
     Dates: start: 20060801, end: 20061001
  6. PREDNISOLONE [Concomitant]
     Dosage: 40 MG, UNK
  7. PREDNISOLONE [Concomitant]
     Indication: GASTROINTESTINAL STROMAL TUMOUR
     Dosage: 5 MG, DAILY
     Dates: start: 20070201

REACTIONS (14)
  - GASTROINTESTINAL STROMAL TUMOUR [None]
  - HYPERKERATOSIS [None]
  - EYE PRURITUS [None]
  - HYPERSENSITIVITY [None]
  - TINEA PEDIS [None]
  - DERMATITIS [None]
  - ERYTHEMA [None]
  - ORAL PRURITUS [None]
  - RETROPERITONEAL HAEMORRHAGE [None]
  - PRURITUS GENERALISED [None]
  - METASTASES TO ADRENALS [None]
  - NEOPLASM MALIGNANT [None]
  - PYREXIA [None]
  - RASH GENERALISED [None]
